FAERS Safety Report 18068392 (Version 1)
Quarter: 2020Q3

REPORT INFORMATION
  Report Type: Report from Study
  Country: US (occurrence: US)
  Receive Date: 20200724
  Receipt Date: 20200724
  Transmission Date: 20201103
  Serious: Yes (Hospitalization)
  Sender: FDA-Public Use
  Company Number: US-ASTRAZENECA-2020SE41212

PATIENT
  Age: 21660 Day
  Sex: Female
  Weight: 128.8 kg

DRUGS (18)
  1. TAGRISSO [Suspect]
     Active Substance: OSIMERTINIB
     Indication: LUNG CARCINOMA CELL TYPE UNSPECIFIED STAGE 0
     Route: 048
     Dates: start: 20190412, end: 2020
  2. ALLOPURINOL. [Concomitant]
     Active Substance: ALLOPURINOL
  3. METFORMIN [Concomitant]
     Active Substance: METFORMIN HYDROCHLORIDE
     Dosage: 1000
  4. CARVEDILOL. [Concomitant]
     Active Substance: CARVEDILOL
     Dosage: 6.25
  5. MUCINEX DM [Concomitant]
     Active Substance: DEXTROMETHORPHAN HYDROBROMIDE\GUAIFENESIN
  6. TESSALON [Concomitant]
     Active Substance: BENZONATATE
  7. ALBUTEROL. [Concomitant]
     Active Substance: ALBUTEROL
  8. ESTRADIOL. [Concomitant]
     Active Substance: ESTRADIOL
     Dosage: 2
  9. PAXIL [Concomitant]
     Active Substance: PAROXETINE HYDROCHLORIDE
     Dosage: 40
  10. BUDESONIDE SUSPENSION [Suspect]
     Active Substance: BUDESONIDE
     Route: 055
  11. OMEPRAZOLE. [Suspect]
     Active Substance: OMEPRAZOLE
     Dosage: 20
     Route: 048
  12. FUROSEMIDE. [Concomitant]
     Active Substance: FUROSEMIDE
     Dosage: 40
  13. LISINOPRIL. [Concomitant]
     Active Substance: LISINOPRIL
     Dosage: 40
  14. TAGRISSO [Suspect]
     Active Substance: OSIMERTINIB
     Indication: LUNG CARCINOMA CELL TYPE UNSPECIFIED STAGE 0
     Route: 048
     Dates: start: 2020
  15. ADVAIR DISKUS [Concomitant]
     Active Substance: FLUTICASONE PROPIONATE\SALMETEROL XINAFOATE
  16. FLUTICASONE SPRAY [Concomitant]
     Active Substance: FLUTICASONE
     Dosage: 50
  17. LYRICA [Concomitant]
     Active Substance: PREGABALIN
     Dosage: 100
  18. TRAZODONE [Concomitant]
     Active Substance: TRAZODONE HYDROCHLORIDE
     Dosage: 300

REACTIONS (3)
  - Product dose omission issue [Unknown]
  - Fatigue [Unknown]
  - Skin ulcer [Unknown]
